FAERS Safety Report 5153788-9 (Version None)
Quarter: 2006Q4

REPORT INFORMATION
  Report Type: 
  Country: None (occurrence: None)
  Receive Date: 20061120
  Receipt Date: 20061107
  Transmission Date: 20070319
  Serious: Yes (Other)
  Sender: FDA-Public Use
  Company Number: PHNU2006DE03690

PATIENT
  Age: 75 Year
  Sex: Male

DRUGS (2)
  1. CARBAMAZEPINE [Suspect]
     Route: 048
  2. ATOSIL [Concomitant]

REACTIONS (1)
  - PULMONARY EMBOLISM [None]
